FAERS Safety Report 26089841 (Version 1)
Quarter: 2025Q4

REPORT INFORMATION
  Report Type: Report from Study
  Country: CA (occurrence: CA)
  Receive Date: 20251125
  Receipt Date: 20251125
  Transmission Date: 20260118
  Serious: Yes (Other)
  Sender: ROCHE
  Company Number: CA-ROCHE-10000440729

PATIENT
  Age: 64 Year
  Sex: Male

DRUGS (2)
  1. GAZYVA [Suspect]
     Active Substance: OBINUTUZUMAB
     Indication: Glomerulonephritis membranous
     Dosage: NO PIRS
     Route: 042
     Dates: start: 20250408, end: 20250423
  2. GAZYVA [Suspect]
     Active Substance: OBINUTUZUMAB
     Dosage: SINGLE INFUSION
     Route: 042
     Dates: start: 20251118

REACTIONS (2)
  - Blood pressure systolic increased [Unknown]
  - Peripheral swelling [Unknown]

NARRATIVE: CASE EVENT DATE: 20251118
